FAERS Safety Report 5562262-7 (Version None)
Quarter: 2007Q4

REPORT INFORMATION
  Report Type: 
  Country: None (occurrence: None)
  Receive Date: 20071215
  Receipt Date: 20070925
  Transmission Date: 20080405
  Serious: No
  Sender: FDA-Public Use
  Company Number: US-AMGEN-KDL244956

PATIENT
  Sex: Female

DRUGS (4)
  1. ENBREL [Suspect]
     Indication: RHEUMATOID ARTHRITIS
     Route: 058
     Dates: start: 20070907
  2. METHOTREXATE [Concomitant]
  3. PLAQUENIL [Concomitant]
     Dates: start: 19990101
  4. AZULFIDINE EN-TABS [Concomitant]

REACTIONS (5)
  - ARTHRALGIA [None]
  - BLOOD PRESSURE INCREASED [None]
  - HEADACHE [None]
  - NAUSEA [None]
  - NERVOUSNESS [None]
